FAERS Safety Report 7980514-8 (Version None)
Quarter: 2011Q4

REPORT INFORMATION
  Report Type: 
  Country: None (occurrence: None)
  Receive Date: 20111214
  Receipt Date: 20111212
  Transmission Date: 20120403
  Serious: Yes (Life-Threatening, Hospitalization)
  Sender: FDA-Public Use
  Company Number: FR-GLAXOSMITHKLINE-B0738089A

PATIENT
  Sex: Male
  Weight: 44 kg

DRUGS (17)
  1. FLUTICASONE PROPIONATE/SALMETEROL [Concomitant]
     Dosage: 1000MCG PER DAY
     Route: 055
  2. ATORVASTATIN CALCIUM [Concomitant]
     Dosage: 1UNIT PER DAY
     Route: 065
  3. NEXIUM [Concomitant]
     Dosage: 40MG PER DAY
     Route: 065
  4. PAROXETINE HCL [Suspect]
     Indication: PRODUCT USED FOR UNKNOWN INDICATION
     Dosage: 1UNIT PER DAY
     Route: 048
     Dates: start: 20110714, end: 20110725
  5. TRAMADOL HCL [Suspect]
     Indication: PRODUCT USED FOR UNKNOWN INDICATION
     Dosage: 100MG TWICE PER DAY
     Route: 048
     Dates: start: 20110714, end: 20110719
  6. GAVISCON [Concomitant]
     Dosage: 3UNIT PER DAY
     Route: 065
  7. ISOPTIN [Concomitant]
     Dosage: 120MG PER DAY
     Route: 065
  8. LANSOYL [Concomitant]
     Dosage: 1UNIT THREE TIMES PER DAY
     Route: 065
  9. TRAMADOL HCL [Suspect]
     Indication: PRODUCT USED FOR UNKNOWN INDICATION
     Route: 048
     Dates: start: 20110713, end: 20110713
  10. ACETAMINOPHEN AND TRAMADOL HCL [Suspect]
     Indication: PRODUCT USED FOR UNKNOWN INDICATION
     Route: 048
     Dates: start: 20110713, end: 20110719
  11. PAROXETINE HCL [Suspect]
     Indication: PRODUCT USED FOR UNKNOWN INDICATION
     Dosage: 20MG PER DAY
     Route: 048
     Dates: start: 20110713, end: 20110713
  12. OXYGEN THERAPY [Concomitant]
     Route: 055
  13. XANAX [Concomitant]
     Dosage: 3UNIT PER DAY
     Route: 065
     Dates: end: 20110720
  14. PREDNISOLONE [Concomitant]
     Indication: CHRONIC OBSTRUCTIVE PULMONARY DISEASE
     Route: 065
  15. HALDOL [Concomitant]
     Route: 065
     Dates: start: 20110720
  16. VALIUM [Concomitant]
     Route: 065
     Dates: start: 20110720
  17. ASPIRIN [Concomitant]
     Dosage: 75MG PER DAY
     Route: 065

REACTIONS (18)
  - SEROTONIN SYNDROME [None]
  - GRAND MAL CONVULSION [None]
  - ENCEPHALOPATHY [None]
  - DISTURBANCE IN ATTENTION [None]
  - MUSCLE RIGIDITY [None]
  - TACHYCARDIA [None]
  - INCOHERENT [None]
  - HAEMODYNAMIC INSTABILITY [None]
  - DRUG INTERACTION [None]
  - COMA [None]
  - HYPOTENSION [None]
  - AGITATION [None]
  - AUTONOMIC NERVOUS SYSTEM IMBALANCE [None]
  - ALTERED STATE OF CONSCIOUSNESS [None]
  - OVERDOSE [None]
  - HALLUCINATION [None]
  - HYPERTONIA [None]
  - PYREXIA [None]
